FAERS Safety Report 5027792-5 (Version None)
Quarter: 2006Q2

REPORT INFORMATION
  Report Type: 
  Country: None (occurrence: None)
  Receive Date: 20060501
  Receipt Date: 20060201
  Transmission Date: 20061013
  Serious: Yes (Other)
  Sender: FDA-Public Use
  Company Number: 200515077US

PATIENT
  Age: 38 Year
  Sex: Male

DRUGS (2)
  1. KETEK [Suspect]
     Indication: SINUSITIS
     Dosage: QD
  2. KETEK [Suspect]
     Indication: SINUSITIS

REACTIONS (1)
  - HEPATIC ENZYME INCREASED [None]
